FAERS Safety Report 6033167-2 (Version None)
Quarter: 2009Q1

REPORT INFORMATION
  Report Type: 
  Country: None (occurrence: None)
  Receive Date: 20090109
  Receipt Date: 20090105
  Transmission Date: 20090719
  Serious: Yes (Disabling)
  Sender: FDA-Public Use
  Company Number: US-MERCK-0811USA00686

PATIENT
  Age: 70 Year
  Sex: Female

DRUGS (10)
  1. SINGULAIR [Suspect]
     Indication: ASTHMA
     Route: 048
     Dates: start: 20080714, end: 20081020
  2. SINGULAIR [Suspect]
     Indication: RESPIRATORY TRACT INFECTION
     Route: 048
     Dates: start: 20080714, end: 20081020
  3. SERTRALINE HYDROCHLORIDE [Concomitant]
     Route: 065
     Dates: start: 20080801, end: 20081015
  4. SYNTHROID [Concomitant]
     Route: 065
  5. HYDROCHLOROTHIAZIDE [Concomitant]
     Route: 048
  6. TOPROL-XL [Concomitant]
     Route: 065
  7. LIPITOR [Concomitant]
     Route: 065
     Dates: end: 20081020
  8. OSTEO-BI-FLEX [Concomitant]
     Route: 065
  9. CENTRUM SILVER [Concomitant]
     Route: 065
  10. ASCORBIC ACID [Concomitant]
     Route: 065

REACTIONS (7)
  - ALANINE AMINOTRANSFERASE INCREASED [None]
  - ANOREXIA [None]
  - ASPARTATE AMINOTRANSFERASE INCREASED [None]
  - EOSINOPHIL COUNT INCREASED [None]
  - GENERAL SYMPTOM [None]
  - NAUSEA [None]
  - NEUROPATHY PERIPHERAL [None]
